FAERS Safety Report 15557921 (Version 4)
Quarter: 2019Q1

REPORT INFORMATION
  Report Type: Spontaneous
  Country: US (occurrence: US)
  Receive Date: 20181027
  Receipt Date: 20190218
  Transmission Date: 20190417
  Serious: Yes (Hospitalization, Other)
  Sender: FDA-Public Use
  Company Number: US-009507513-1810USA009547

PATIENT
  Sex: Female

DRUGS (11)
  1. XOPENEX HFA [Concomitant]
     Active Substance: LEVALBUTEROL TARTRATE
     Indication: WHEEZING
  2. LEVALBUTEROL HYDROCHLORIDE. [Concomitant]
     Active Substance: LEVALBUTEROL HYDROCHLORIDE
     Dosage: 1.25MG/3ML, 1 UNIT DOSE Q 4-6 HOURS PRN
     Route: 055
     Dates: start: 20170811
  3. ASMANEX [Suspect]
     Active Substance: MOMETASONE FUROATE
     Indication: ASTHMA
     Dosage: 1 PUFF DAILY IN THE MORNING (ALSO REPORTED AS 1 PUFF DAILY IN THE EVENING)
     Route: 055
     Dates: start: 20140422, end: 201707
  4. LEVOTHYROXINE SODIUM. [Suspect]
     Active Substance: LEVOTHYROXINE SODIUM
     Dosage: 88 MICROGRAM, QD
     Route: 048
  5. ASMANEX [Suspect]
     Active Substance: MOMETASONE FUROATE
     Dosage: 110 MICROGRAM, ONE PUFF ONCE PER DAY
     Route: 055
     Dates: start: 2017
  6. ASMANEX [Suspect]
     Active Substance: MOMETASONE FUROATE
     Indication: ASTHMA
     Dosage: 2 PUFFS DAILY
     Route: 055
     Dates: end: 2017
  7. ALLEGRA [Concomitant]
     Active Substance: FEXOFENADINE HYDROCHLORIDE
     Indication: HYPERSENSITIVITY
     Dosage: 180 MILLIGRAM
     Route: 048
     Dates: start: 20140206
  8. XOPENEX HFA [Concomitant]
     Active Substance: LEVALBUTEROL TARTRATE
     Indication: ASTHMA
     Dosage: 2 PUFFS EVERY 4-6 HOURS PRN (ALSO 1-2 PUFFS Q4H AS NEEDED)
     Route: 055
     Dates: start: 20160902
  9. IBUPROFEN. [Concomitant]
     Active Substance: IBUPROFEN
     Indication: PRODUCT USED FOR UNKNOWN INDICATION
     Dosage: UNK
     Route: 048
     Dates: start: 20140206, end: 20170725
  10. LEVOTHYROXINE SODIUM. [Suspect]
     Active Substance: LEVOTHYROXINE SODIUM
  11. LEVALBUTEROL HYDROCHLORIDE. [Concomitant]
     Active Substance: LEVALBUTEROL HYDROCHLORIDE
     Indication: WHEEZING
     Dosage: 0.63MG/3ML, 1 UNIT DOSE Q 4-6 HOURS PRN
     Route: 055
     Dates: start: 20150910, end: 20170811

REACTIONS (51)
  - Coeliac disease [Unknown]
  - Asthma [Recovered/Resolved]
  - Chest pain [Unknown]
  - White blood cell count increased [Unknown]
  - Autoimmune thyroiditis [Not Recovered/Not Resolved]
  - Sinusitis [Recovered/Resolved]
  - Radius fracture [Recovered/Resolved]
  - Rhinitis allergic [Not Recovered/Not Resolved]
  - Back pain [Not Recovered/Not Resolved]
  - Chronic sinusitis [Unknown]
  - Dyspnoea [Recovered/Resolved]
  - Arthralgia [Not Recovered/Not Resolved]
  - Otitis media chronic [Unknown]
  - Inappropriate schedule of product administration [Unknown]
  - Fungal skin infection [Recovered/Resolved]
  - Enuresis [Recovered/Resolved]
  - Dermatitis atopic [Recovered/Resolved]
  - Upper respiratory tract infection [Recovered/Resolved]
  - Viral infection [Recovered/Resolved]
  - Nausea [Unknown]
  - Skin mass [Unknown]
  - Pain in extremity [Unknown]
  - Musculoskeletal chest pain [Not Recovered/Not Resolved]
  - Vitamin D deficiency [Not Recovered/Not Resolved]
  - Respiratory syncytial virus bronchiolitis [Recovered/Resolved]
  - Pyrexia [Recovered/Resolved]
  - Abdominal pain [Not Recovered/Not Resolved]
  - Bronchitis [Recovered/Resolved]
  - Gastroenteritis [Recovered/Resolved]
  - Flat affect [Unknown]
  - Disturbance in attention [Unknown]
  - Neck pain [Unknown]
  - Seizure [Recovered/Resolved]
  - Colitis [Recovered/Resolved]
  - Pharyngitis [Recovered/Resolved]
  - Influenza [Recovered/Resolved]
  - Tremor [Not Recovered/Not Resolved]
  - Type 1 diabetes mellitus [Not Recovered/Not Resolved]
  - Mental impairment [Unknown]
  - Muscle spasms [Recovered/Resolved]
  - Constipation [Not Recovered/Not Resolved]
  - Dysarthria [Unknown]
  - Pneumonia [Recovered/Resolved]
  - Acute sinusitis [Recovered/Resolved]
  - Allergic bronchitis [Recovered/Resolved]
  - Asthma [Recovered/Resolved]
  - Ulna fracture [Recovered/Resolved]
  - Gastrooesophageal reflux disease [Not Recovered/Not Resolved]
  - Muscular weakness [Recovered/Resolved]
  - Haemorrhoids [Recovered/Resolved with Sequelae]
  - Arthropathy [Not Recovered/Not Resolved]

NARRATIVE: CASE EVENT DATE: 2015
